FAERS Safety Report 8040214-5 (Version None)
Quarter: 2012Q1

REPORT INFORMATION
  Report Type: 
  Country: None (occurrence: None)
  Receive Date: 20120111
  Receipt Date: 20111223
  Transmission Date: 20120608
  Serious: No
  Sender: FDA-Public Use
  Company Number: US-AMGEN-USASP2011035855

PATIENT
  Age: 55 Year
  Sex: Female

DRUGS (3)
  1. ENBREL [Suspect]
     Indication: PSORIATIC ARTHROPATHY
  2. METHOTREXATE [Concomitant]
     Dosage: 1 MG, QWK
     Dates: start: 20091001
  3. ENBREL [Suspect]
     Indication: RHEUMATOID ARTHRITIS
     Dosage: 50 MG, QWK
     Dates: start: 20100301, end: 20111001

REACTIONS (10)
  - RECTAL PROLAPSE [None]
  - PSORIASIS [None]
  - NODULE [None]
  - BLADDER PROLAPSE [None]
  - EMPHYSEMA [None]
  - CHEST PAIN [None]
  - ASTHMA [None]
  - PSORIATIC ARTHROPATHY [None]
  - FOOT FRACTURE [None]
  - RHEUMATOID ARTHRITIS [None]
